FAERS Safety Report 11650828 (Version 1)
Quarter: 2015Q4

REPORT INFORMATION
  Report Type: Spontaneous
  Country: US (occurrence: US)
  Receive Date: 20151021
  Receipt Date: 20151021
  Transmission Date: 20160304
  Serious: No
  Sender: FDA-Public Use
  Company Number: US-ABBVIE-13P-163-1176739-00

PATIENT
  Sex: Female

DRUGS (1)
  1. LUPRON [Suspect]
     Active Substance: LEUPROLIDE ACETATE
     Indication: PRODUCT USED FOR UNKNOWN INDICATION
     Route: 030

REACTIONS (6)
  - Gastrointestinal pain [Unknown]
  - Heart rate irregular [Unknown]
  - Headache [Unknown]
  - Hot flush [Unknown]
  - Hypomenorrhoea [Unknown]
  - Muscle spasms [Unknown]
